FAERS Safety Report 5307160-9 (Version None)
Quarter: 2007Q2

REPORT INFORMATION
  Report Type: 
  Country: None (occurrence: None)
  Receive Date: 20070420
  Receipt Date: 20070420
  Transmission Date: 20071010
  Serious: Yes (Other)
  Sender: FDA-Public Use
  Company Number: None

PATIENT
  Age: 42 Year
  Sex: Male
  Weight: 90.7194 kg

DRUGS (1)
  1. CIPRO [Suspect]
     Indication: PROSTATITIS
     Dosage: 500MG 2TIMES PER DAY PO
     Route: 048
     Dates: start: 20060724, end: 20060815

REACTIONS (5)
  - DIZZINESS [None]
  - HEADACHE [None]
  - MUSCULOSKELETAL PAIN [None]
  - PAIN IN JAW [None]
  - STOMACH DISCOMFORT [None]
